FAERS Safety Report 13114375 (Version 3)
Quarter: 2017Q2

REPORT INFORMATION
  Report Type: Report from Study
  Country: CO (occurrence: CO)
  Receive Date: 20170113
  Receipt Date: 20170510
  Transmission Date: 20170830
  Serious: Yes (Other)
  Sender: FDA-Public Use
  Company Number: CO-SA-2017SA004686

PATIENT
  Age: 25 Year
  Sex: Female
  Weight: 76 kg

DRUGS (1)
  1. LEMTRADA [Suspect]
     Active Substance: ALEMTUZUMAB
     Indication: MULTIPLE SCLEROSIS
     Route: 042
     Dates: start: 20160622, end: 20160626

REACTIONS (6)
  - Monocyte percentage increased [Unknown]
  - Red blood cell count decreased [Unknown]
  - Eosinophilia [Recovered/Resolved]
  - Haematocrit decreased [Unknown]
  - Leukopenia [Not Recovered/Not Resolved]
  - Lymphopenia [Not Recovered/Not Resolved]

NARRATIVE: CASE EVENT DATE: 20160823
